FAERS Safety Report 12486256 (Version 1)
Quarter: 2016Q2

REPORT INFORMATION
  Report Type: Spontaneous
  Country: CA (occurrence: CA)
  Receive Date: 20160621
  Receipt Date: 20160621
  Transmission Date: 20160815
  Serious: Yes (Life-Threatening, Hospitalization, Other)
  Sender: FDA-Public Use
  Company Number: CA-ACTAVIS-2016-12882

PATIENT
  Age: 42 Year
  Sex: Male

DRUGS (14)
  1. CIPROFLOXACIN HYDROCHLORIDE (UNKNOWN) [Suspect]
     Active Substance: CIPROFLOXACIN HYDROCHLORIDE
     Indication: INFLUENZA LIKE ILLNESS
     Dosage: UNK
     Route: 048
  2. FORMOTEROL W/BUDESONIDE [Concomitant]
     Active Substance: BUDESONIDE\FORMOTEROL
     Indication: ROUTINE HEALTH MAINTENANCE
     Dosage: UNK
     Route: 065
  3. HYDROCORTISONE. [Concomitant]
     Active Substance: HYDROCORTISONE
     Indication: ROUTINE HEALTH MAINTENANCE
     Dosage: UNK
     Route: 065
  4. MEROPENEM (UNKNOWN) [Suspect]
     Active Substance: MEROPENEM
     Indication: INFLUENZA LIKE ILLNESS
     Dosage: UNK
     Route: 042
  5. AZITHROMYCIN ANHYDROUS. [Concomitant]
     Active Substance: AZITHROMYCIN ANHYDROUS
     Indication: ROUTINE HEALTH MAINTENANCE
     Dosage: UNK
     Route: 065
  6. MONTELUKAST [Concomitant]
     Active Substance: MONTELUKAST SODIUM
     Indication: ROUTINE HEALTH MAINTENANCE
     Dosage: UNK
     Route: 065
  7. OSELTAMIVIR [Concomitant]
     Active Substance: OSELTAMIVIR
     Indication: INFLUENZA LIKE ILLNESS
     Dosage: UNK
     Route: 065
  8. OMALIZUMAB [Concomitant]
     Active Substance: OMALIZUMAB
     Dosage: UNK
     Route: 065
  9. TOBRAMYCIN. [Concomitant]
     Active Substance: TOBRAMYCIN
     Indication: INFLUENZA LIKE ILLNESS
     Dosage: ALTERING EVERY OTHER MONTH WITH NEBULIZED AZTREONAM
     Route: 042
  10. DORNASE ALFA [Concomitant]
     Active Substance: DORNASE ALFA
     Indication: ROUTINE HEALTH MAINTENANCE
     Dosage: NEBULIZED
     Route: 065
  11. CICLESONIDE [Concomitant]
     Active Substance: CICLESONIDE
     Indication: ROUTINE HEALTH MAINTENANCE
     Dosage: UNK
     Route: 065
  12. AZTREONAM. [Concomitant]
     Active Substance: AZTREONAM
     Indication: ROUTINE HEALTH MAINTENANCE
     Dosage: NEBULIZED AZTREONAM ALTERING EVERY OTHER MONTH WITH TOBRAMYCIN
     Route: 065
  13. SALINE                             /00075401/ [Concomitant]
     Active Substance: SODIUM CHLORIDE
     Indication: ROUTINE HEALTH MAINTENANCE
     Dosage: UNK
     Route: 045
  14. VANCOMYCIN [Concomitant]
     Active Substance: VANCOMYCIN
     Indication: INFLUENZA LIKE ILLNESS
     Dosage: UNK
     Route: 042

REACTIONS (1)
  - Toxic epidermal necrolysis [Recovered/Resolved]
